FAERS Safety Report 24862744 (Version 1)
Quarter: 2025Q1

REPORT INFORMATION
  Report Type: Spontaneous
  Country: US (occurrence: US)
  Receive Date: 20250120
  Receipt Date: 20250120
  Transmission Date: 20250408
  Serious: Yes (Hospitalization, Other)
  Sender: OTSUKA
  Company Number: US-OTSUKA-2025_000935

PATIENT
  Age: 75 Year
  Sex: Male
  Weight: 70.31 kg

DRUGS (10)
  1. REXULTI [Suspect]
     Active Substance: BREXPIPRAZOLE
     Indication: Behaviour disorder
     Route: 065
     Dates: start: 20240409
  2. REXULTI [Suspect]
     Active Substance: BREXPIPRAZOLE
     Route: 065
  3. REXULTI [Suspect]
     Active Substance: BREXPIPRAZOLE
     Route: 065
     Dates: start: 20240429
  4. REXULTI [Suspect]
     Active Substance: BREXPIPRAZOLE
     Route: 065
     Dates: start: 20240701, end: 20240820
  5. DEPAKOTE [Suspect]
     Active Substance: DIVALPROEX SODIUM
     Indication: Dementia
     Route: 065
     Dates: start: 20231220
  6. DEPAKOTE [Suspect]
     Active Substance: DIVALPROEX SODIUM
     Route: 065
     Dates: start: 20240226
  7. DEPAKOTE [Suspect]
     Active Substance: DIVALPROEX SODIUM
     Route: 065
     Dates: start: 20240409
  8. DEPAKOTE [Suspect]
     Active Substance: DIVALPROEX SODIUM
     Route: 065
     Dates: start: 20240429
  9. COGENTIN [Suspect]
     Active Substance: BENZTROPINE MESYLATE
     Indication: Behaviour disorder
     Dosage: 0.5 MG, TWICE A DAY
     Route: 065
     Dates: start: 20241009, end: 20241013
  10. VALPROATE SODIUM [Concomitant]
     Active Substance: VALPROATE SODIUM
     Indication: Product used for unknown indication
     Dosage: 500MG A DAY (FOR FEEDING TUBE)
     Route: 065

REACTIONS (10)
  - Confusional state [Unknown]
  - Pneumonia aspiration [Recovering/Resolving]
  - Weight decreased [Not Recovered/Not Resolved]
  - Drooling [Unknown]
  - Gait disturbance [Unknown]
  - Cogwheel rigidity [Not Recovered/Not Resolved]
  - Fall [Unknown]
  - Parkinsonism [Not Recovered/Not Resolved]
  - Somnolence [Unknown]
  - Product use in unapproved indication [Unknown]

NARRATIVE: CASE EVENT DATE: 20240409
